FAERS Safety Report 11635772 (Version 2)
Quarter: 2015Q4

REPORT INFORMATION
  Report Type: Spontaneous
  Country: US (occurrence: US)
  Receive Date: 20151016
  Receipt Date: 20151117
  Transmission Date: 20160304
  Serious: No
  Sender: FDA-Public Use
  Company Number: US-PFIZER INC-2015314233

PATIENT
  Age: 50 Year
  Sex: Male
  Weight: 88 kg

DRUGS (4)
  1. ZYVOX [Suspect]
     Active Substance: LINEZOLID
     Indication: OSTEOMYELITIS
     Dosage: 600 MG IN 300 ML BID HOUR
     Route: 042
     Dates: end: 20151006
  2. ZYVOX [Suspect]
     Active Substance: LINEZOLID
     Indication: STAPHYLOCOCCAL INFECTION
  3. ZYVOX [Suspect]
     Active Substance: LINEZOLID
     Indication: STAPHYLOCOCCAL INFECTION
  4. ZYVOX [Suspect]
     Active Substance: LINEZOLID
     Indication: OSTEOMYELITIS
     Dosage: UNK, 2X/DAY
     Route: 048

REACTIONS (5)
  - Nausea [Recovered/Resolved]
  - Platelet count decreased [Unknown]
  - Product use issue [Unknown]
  - Anaemia [Unknown]
  - Fatigue [Recovered/Resolved]
